FAERS Safety Report 5652068-2 (Version None)
Quarter: 2008Q1

REPORT INFORMATION
  Report Type: 
  Country: None (occurrence: None)
  Receive Date: 20080131
  Receipt Date: 20071029
  Transmission Date: 20080703
  Serious: No
  Sender: FDA-Public Use
  Company Number: US200710007249

PATIENT
  Age: 57 Year
  Sex: Female
  Weight: 123.8 kg

DRUGS (5)
  1. BYETTA [Suspect]
     Indication: TYPE 2 DIABETES MELLITUS
     Dosage: 5 UG, 2/D, SUBCUTANEOUS ;  5 UG, 2/D, SUBCUTANEOUS
     Route: 058
     Dates: start: 20071004
  2. BYETTA [Suspect]
     Indication: TYPE 2 DIABETES MELLITUS
     Dosage: 5 UG, 2/D, SUBCUTANEOUS ;  5 UG, 2/D, SUBCUTANEOUS
     Route: 058
     Dates: start: 20071004
  3. ACTOS /USA/ (PIOGLITAZONE HYDROCHLORIDE) [Concomitant]
  4. AMARYL [Concomitant]
  5. ZOLOFT [Concomitant]

REACTIONS (11)
  - ABDOMINAL PAIN [None]
  - ASTHENIA [None]
  - CHEST PAIN [None]
  - CHILLS [None]
  - DEHYDRATION [None]
  - NAUSEA [None]
  - PAIN IN EXTREMITY [None]
  - PYREXIA [None]
  - RETCHING [None]
  - VIRAL INFECTION [None]
  - VOMITING [None]
